FAERS Safety Report 4730882-5 (Version None)
Quarter: 2005Q3

REPORT INFORMATION
  Report Type: 
  Country: None (occurrence: None)
  Receive Date: 20050728
  Receipt Date: 20050505
  Transmission Date: 20060218
  Serious: Yes (Other)
  Sender: FDA-Public Use
  Company Number: ZICO001232

PATIENT
  Sex: Male

DRUGS (1)
  1. PRIALT [Suspect]
     Dosage: INTRATHECAL
     Route: 037

REACTIONS (1)
  - PSYCHOTIC DISORDER [None]
